FAERS Safety Report 5710245-6 (Version None)
Quarter: 2008Q2

REPORT INFORMATION
  Report Type: 
  Country: None (occurrence: None)
  Receive Date: 20080418
  Receipt Date: 20080408
  Transmission Date: 20081010
  Serious: Yes (Other)
  Sender: FDA-Public Use
  Company Number: US-PFIZER INC-2008023401

PATIENT
  Sex: Female
  Weight: 83.9 kg

DRUGS (5)
  1. CHANTIX [Suspect]
     Indication: SMOKING CESSATION THERAPY
  2. LISINOPRIL AND HYDROCHLOROTHIAZIDE [Concomitant]
     Dosage: TEXT:20/25MG
  3. CELEBREX [Concomitant]
  4. ACETYLSALICYLIC ACID SRT [Concomitant]
  5. PAXIL [Concomitant]
     Indication: HOT FLUSH

REACTIONS (5)
  - ABNORMAL DREAMS [None]
  - AGGRESSION [None]
  - HALLUCINATION [None]
  - THINKING ABNORMAL [None]
  - VISION BLURRED [None]
